FAERS Safety Report 13039984 (Version 1)
Quarter: 2016Q4

REPORT INFORMATION
  Report Type: Spontaneous
  Country: US (occurrence: US)
  Receive Date: 20161219
  Receipt Date: 20161219
  Transmission Date: 20170207
  Serious: No
  Sender: FDA-Public Use
  Company Number: US-009507513-1612USA009406

PATIENT

DRUGS (2)
  1. REMERON [Suspect]
     Active Substance: MIRTAZAPINE
     Indication: ABDOMINAL DISCOMFORT
     Dosage: UNK, UPTO 45 MGS
  2. REMERON [Suspect]
     Active Substance: MIRTAZAPINE
     Dosage: UNK, 15 MGS

REACTIONS (5)
  - Weight increased [Unknown]
  - Rash [Recovered/Resolved]
  - Blister [Unknown]
  - Hypersensitivity [Unknown]
  - Asthma [Unknown]
